FAERS Safety Report 15645898 (Version 2)
Quarter: 2020Q3

REPORT INFORMATION
  Report Type: Spontaneous
  Country: US (occurrence: US)
  Receive Date: 20181121
  Receipt Date: 20200828
  Transmission Date: 20201102
  Serious: Yes (Other)
  Sender: FDA-Public Use
  Company Number: US-GILEAD-2018-0375761

PATIENT
  Age: 50 Year
  Sex: Male
  Weight: 92.97 kg

DRUGS (38)
  1. ZIAGEN [Concomitant]
     Active Substance: ABACAVIR SULFATE
  2. LISINOPRIL. [Concomitant]
     Active Substance: LISINOPRIL
  3. VALACYCLOVIR [Concomitant]
     Active Substance: VALACYCLOVIR HYDROCHLORIDE
  4. STRIBILD [Suspect]
     Active Substance: COBICISTAT\ELVITEGRAVIR\EMTRICITABINE\TENOFOVIR DISOPROXIL FUMARATE
     Indication: PRODUCT USED FOR UNKNOWN INDICATION
     Dosage: UNK
     Route: 048
     Dates: start: 2012, end: 20160613
  5. TRUVADA [Suspect]
     Active Substance: EMTRICITABINE\TENOFOVIR DISOPROXIL FUMARATE
     Indication: PRODUCT USED FOR UNKNOWN INDICATION
     Dosage: UNK
     Route: 048
     Dates: start: 2005, end: 20120703
  6. GENVOYA [Concomitant]
     Active Substance: COBICISTAT\ELVITEGRAVIR\EMTRICITABINE\TENOFOVIR ALAFENAMIDE FUMARATE
  7. BIKTARVY [Concomitant]
     Active Substance: BICTEGRAVIR SODIUM\EMTRICITABINE\TENOFOVIR ALAFENAMIDE FUMARATE
  8. LORAZEPAM. [Concomitant]
     Active Substance: LORAZEPAM
  9. TRAZODONE [Concomitant]
     Active Substance: TRAZODONE HYDROCHLORIDE
  10. AMOXICILLIN. [Concomitant]
     Active Substance: AMOXICILLIN
  11. GAVILYTE ? C [Concomitant]
     Active Substance: POLYETHYLENE GLYCOL 3350\POTASSIUM CHLORIDE\SODIUM BICARBONATE\SODIUM CHLORIDE\SODIUM SULFATE ANHYDROUS
  12. TAMSULOSIN [Concomitant]
     Active Substance: TAMSULOSIN
  13. CABERGOLINE. [Concomitant]
     Active Substance: CABERGOLINE
  14. ROSUVASTATIN. [Concomitant]
     Active Substance: ROSUVASTATIN
  15. KALETRA [Concomitant]
     Active Substance: LOPINAVIR\RITONAVIR
  16. TRIAMCINOLONE [Concomitant]
     Active Substance: TRIAMCINOLONE
  17. ACETAMINOPHEN. [Concomitant]
     Active Substance: ACETAMINOPHEN
  18. PREDNISONE. [Concomitant]
     Active Substance: PREDNISONE
  19. VITAMIN B12 [Concomitant]
     Active Substance: CYANOCOBALAMIN
  20. CRESTOR [Concomitant]
     Active Substance: ROSUVASTATIN CALCIUM
  21. FLUTICASONE. [Concomitant]
     Active Substance: FLUTICASONE
  22. CETIRIZINE [Concomitant]
     Active Substance: CETIRIZINE HYDROCHLORIDE
  23. LORATADINE. [Concomitant]
     Active Substance: LORATADINE
  24. VIREAD [Suspect]
     Active Substance: TENOFOVIR DISOPROXIL FUMARATE
     Indication: HIV INFECTION
     Dosage: UNK
     Route: 048
     Dates: start: 2003, end: 2005
  25. PREZISTA [Concomitant]
     Active Substance: DARUNAVIR ETHANOLATE
  26. AZITHROMYCIN ANHYDROUS. [Concomitant]
     Active Substance: AZITHROMYCIN ANHYDROUS
  27. SULFAMETHOXAZOLE [Concomitant]
     Active Substance: SULFAMETHOXAZOLE
  28. MOMETASONE [Concomitant]
     Active Substance: MOMETASONE
  29. FEXOFENADINE [Concomitant]
     Active Substance: FEXOFENADINE HYDROCHLORIDE
  30. MUCINEX [Concomitant]
     Active Substance: GUAIFENESIN
  31. HYDROXYZINE [Concomitant]
     Active Substance: HYDROXYZINE HYDROCHLORIDE
  32. PAROXETINE. [Concomitant]
     Active Substance: PAROXETINE
  33. CEFDINIR. [Concomitant]
     Active Substance: CEFDINIR
  34. ALFUZOSIN [Concomitant]
     Active Substance: ALFUZOSIN
  35. NORVIR [Concomitant]
     Active Substance: RITONAVIR
  36. VIDEX [Concomitant]
     Active Substance: DIDANOSINE
  37. CIALIS [Concomitant]
     Active Substance: TADALAFIL
  38. FAMOTIDINE. [Concomitant]
     Active Substance: FAMOTIDINE

REACTIONS (7)
  - Pain [Not Recovered/Not Resolved]
  - Depression [Not Recovered/Not Resolved]
  - Economic problem [Not Recovered/Not Resolved]
  - Osteopenia [Not Recovered/Not Resolved]
  - Emotional distress [Not Recovered/Not Resolved]
  - Anhedonia [Not Recovered/Not Resolved]
  - Anxiety [Not Recovered/Not Resolved]

NARRATIVE: CASE EVENT DATE: 20031209
